FAERS Safety Report 8398502 (Version 5)
Quarter: 2012Q4

REPORT INFORMATION
  Report Type: 
  Country: US (occurrence: US)
  Receive Date: 20120209
  Receipt Date: 20120829
  Transmission Date: 20130627
  Serious: Yes (Other)
  Sender: FDA-Public Use
  Company Number: PHEH2012US002769

PATIENT
  Age: 69 Year
  Sex: Male
  Weight: 145 kg

DRUGS (6)
  1. GLEEVEC [Suspect]
     Indication: GASTRIC CANCER
     Dosage: 400 mg, QD
     Route: 048
     Dates: start: 2011
  2. LISINOPRIL/HCTZ [Suspect]
  3. AMLODIPINE [Concomitant]
     Indication: HYPERTENSION
     Dosage: 10 mg, daily
     Route: 048
  4. METFORMIN [Concomitant]
     Indication: DIABETES MELLITUS
     Dosage: 1000 mg daily
     Route: 048
  5. RANITIDINE [Concomitant]
     Indication: GASTROOESOPHAGEAL REFLUX DISEASE
     Dosage: 150 mg daily
     Route: 048
  6. UNSPECIFIED INGREDIENT [Concomitant]

REACTIONS (7)
  - Eye discharge [Unknown]
  - Rash pruritic [Recovering/Resolving]
  - Pharyngeal oedema [Recovered/Resolved]
  - Swollen tongue [Recovered/Resolved]
  - Dysarthria [Unknown]
  - Dysphagia [Unknown]
  - Oedema peripheral [Unknown]
